FAERS Safety Report 18777463 (Version 1)
Quarter: 2021Q1

REPORT INFORMATION
  Report Type: Spontaneous
  Country: CA (occurrence: CA)
  Receive Date: 20210123
  Receipt Date: 20210123
  Transmission Date: 20210419
  Serious: Yes (Hospitalization)
  Sender: FDA-Public Use
  Company Number: CA-TILLOMEDPR-2021-EPL-000097

PATIENT
  Age: 58 Year
  Sex: Female

DRUGS (8)
  1. NORMAL SALINE [Concomitant]
     Active Substance: SODIUM CHLORIDE
     Dosage: 1 L OF 0.9% NORMAL SALINE DURING CIDOFOVIR INFUSION .
  2. CIDOFOVIR. [Suspect]
     Active Substance: CIDOFOVIR
     Indication: CYTOMEGALOVIRUS INFECTION
     Dosage: 1 MG/KG, TID, THREE TIMES A WEEK
     Route: 042
     Dates: start: 20200101, end: 20200123
  3. FILGRASTIM [Concomitant]
     Active Substance: FILGRASTIM
     Indication: NEUTROPENIA
  4. CIDOFOVIR. [Suspect]
     Active Substance: CIDOFOVIR
     Indication: ADENOVIRUS INFECTION
  5. PROBENECID. [Concomitant]
     Active Substance: PROBENECID
     Dosage: 2 GRAM, 1 HOUR BEFORE CIDOFOVIR, THEN 2 HOURS AND 8 HOURS AFTER THE END OF INFUSION TO INCREASE CIDO
     Route: 048
  6. CIDOFOVIR. [Suspect]
     Active Substance: CIDOFOVIR
     Indication: BK VIRUS INFECTION
  7. IMMUNOGLOBULIN G [Concomitant]
     Active Substance: HUMAN IMMUNOGLOBULIN G
     Indication: HYPOGAMMAGLOBULINAEMIA
     Dosage: UNK, TID, 3 TIMES AT 4 WEEK INTERVAL
     Route: 042
  8. DARBEPOETIN [Concomitant]
     Active Substance: DARBEPOETIN ALFA
     Indication: ANAEMIA

REACTIONS (3)
  - Off label use [Unknown]
  - Viral load increased [Recovered/Resolved]
  - Neutropenia [Recovering/Resolving]

NARRATIVE: CASE EVENT DATE: 202001
